FAERS Safety Report 11616135 (Version 1)
Quarter: 2015Q4

REPORT INFORMATION
  Report Type: Spontaneous
  Country: US (occurrence: US)
  Receive Date: 20151009
  Receipt Date: 20151009
  Transmission Date: 20160304
  Serious: Yes (Hospitalization, Other)
  Sender: FDA-Public Use
  Company Number: US-NOVOPROD-466322

PATIENT
  Age: 52 Year
  Sex: Male
  Weight: 81.63 kg

DRUGS (2)
  1. NOVOLOG MIX 70/30 [Suspect]
     Active Substance: INSULIN ASPART
     Indication: TYPE 2 DIABETES MELLITUS
     Dosage: UNK
     Route: 058
     Dates: end: 201311
  2. NOVOLIN R [Suspect]
     Active Substance: INSULIN HUMAN
     Indication: TYPE 2 DIABETES MELLITUS
     Dosage: UNK
     Route: 058
     Dates: end: 201311

REACTIONS (4)
  - Coma [Recovered/Resolved]
  - Skin discolouration [Unknown]
  - Diabetes mellitus inadequate control [Unknown]
  - Toe amputation [Unknown]

NARRATIVE: CASE EVENT DATE: 201311
